FAERS Safety Report 9672146 (Version 2)
Quarter: 2013Q4

REPORT INFORMATION
  Report Type: Spontaneous
  Country: FR (occurrence: FR)
  Receive Date: 20131106
  Receipt Date: 20131128
  Transmission Date: 20140711
  Serious: Yes (Hospitalization)
  Sender: FDA-Public Use
  Company Number: FR-JNJFOC-20131019040

PATIENT
  Age: 49 Year
  Sex: Male

DRUGS (6)
  1. REMICADE [Suspect]
     Indication: CROHN^S DISEASE
     Route: 042
     Dates: start: 2002
  2. REMICADE [Suspect]
     Indication: CROHN^S DISEASE
     Route: 042
     Dates: start: 20130115
  3. IMUREL [Suspect]
     Indication: CROHN^S DISEASE
     Route: 065
     Dates: start: 2002, end: 20130115
  4. PENTASA [Concomitant]
     Route: 065
  5. LOPERAMIDE [Concomitant]
     Route: 065
  6. PARACETAMOL [Concomitant]
     Route: 065

REACTIONS (1)
  - Hepatic angiosarcoma [Not Recovered/Not Resolved]
